FAERS Safety Report 23924707 (Version 2)
Quarter: 2025Q2

REPORT INFORMATION
  Report Type: Spontaneous
  Country: IT (occurrence: IT)
  Receive Date: 20240531
  Receipt Date: 20250425
  Transmission Date: 20250716
  Serious: Yes (Hospitalization, Other)
  Sender: HILL DERMACEUTICALS, INC.
  Company Number: IT-Hill Dermaceuticals, Inc.-2157609

PATIENT
  Sex: Male

DRUGS (3)
  1. FLUOROURACIL [Suspect]
     Active Substance: FLUOROURACIL
     Indication: Product used for unknown indication
  2. VECTIBIX [Suspect]
     Active Substance: PANITUMUMAB
  3. OXALIPLATIN [Concomitant]
     Active Substance: OXALIPLATIN

REACTIONS (6)
  - Interstitial lung disease [Unknown]
  - Rash [Unknown]
  - Skin exfoliation [Unknown]
  - Pyrexia [Unknown]
  - Hypertrichosis [Unknown]
  - Eyelash changes [Unknown]

NARRATIVE: CASE EVENT DATE: 20240401
